FAERS Safety Report 23977357 (Version 2)
Quarter: 2024Q2

REPORT INFORMATION
  Report Type: Spontaneous
  Country: US (occurrence: US)
  Receive Date: 20240614
  Receipt Date: 20240624
  Transmission Date: 20240716
  Serious: Yes (Life-Threatening, Hospitalization, Other)
  Sender: FDA-Public Use
  Company Number: US-PFIZER INC-202400192858

PATIENT
  Age: 43 Year
  Sex: Male

DRUGS (1)
  1. METHOTREXATE SODIUM [Suspect]
     Active Substance: METHOTREXATE SODIUM
     Indication: Psoriasis
     Dosage: CUMULATIVE DOSE OF 315 MG

REACTIONS (21)
  - Intentional overdose [Unknown]
  - Pancytopenia [Unknown]
  - Neutrophil count decreased [Unknown]
  - Acute kidney injury [Unknown]
  - Hyperbilirubinaemia [Unknown]
  - Enterococcus test positive [Unknown]
  - Candida test positive [Unknown]
  - Septic shock [Unknown]
  - Respiratory failure [Unknown]
  - Renal failure [Unknown]
  - Opportunistic infection [Unknown]
  - Immune system disorder [Unknown]
  - Fall [Unknown]
  - Tachycardia [Unknown]
  - Hypotension [Unknown]
  - Neutropenia [Unknown]
  - Pharyngeal ulceration [Unknown]
  - Urinary tract infection [Unknown]
  - Nikolsky^s sign [Unknown]
  - Jaundice [Unknown]
  - Off label use [Unknown]
